FAERS Safety Report 6792439-4 (Version None)
Quarter: 2010Q2

REPORT INFORMATION
  Report Type: 
  Country: None (occurrence: None)
  Receive Date: 20100624
  Receipt Date: 20100622
  Transmission Date: 20101027
  Serious: Yes (Death, Hospitalization)
  Sender: FDA-Public Use
  Company Number: IT-MERCK-1006ITA00042

PATIENT
  Age: 80 Year
  Sex: Male

DRUGS (5)
  1. ZOCOR [Suspect]
     Indication: CARDIOVASCULAR EVENT PROPHYLAXIS
     Route: 048
     Dates: start: 20100321, end: 20100422
  2. CLOPIDOGREL BISULFATE [Suspect]
     Indication: ACUTE CORONARY SYNDROME
     Route: 048
     Dates: start: 20100321, end: 20100416
  3. ASPIRIN [Concomitant]
     Indication: THROMBOSIS PROPHYLAXIS
     Route: 048
     Dates: start: 20100525
  4. CARVEDILOL [Concomitant]
     Indication: HYPERTENSION
     Route: 048
     Dates: start: 20100321, end: 20100526
  5. OMEGA-3 ACID ETHYL ESTERS [Concomitant]
     Indication: CARDIOVASCULAR EVENT PROPHYLAXIS
     Route: 048
     Dates: start: 20100321, end: 20100422

REACTIONS (3)
  - CHOLESTASIS [None]
  - HEPATIC FAILURE [None]
  - MYELODYSPLASTIC SYNDROME [None]
